FAERS Safety Report 12718576 (Version 1)
Quarter: 2016Q3

REPORT INFORMATION
  Report Type: Other
  Country: US (occurrence: US)
  Receive Date: 20160906
  Receipt Date: 20160906
  Transmission Date: 20161109
  Serious: Yes (Hospitalization, Other)
  Sender: FDA-Public Use
  Company Number: US-GUTHY-RENKER LLC-1057093

PATIENT
  Age: 26 Year
  Sex: Female

DRUGS (11)
  1. PROACTIV REPAIRING TREATMENT [Suspect]
     Active Substance: BENZOYL PEROXIDE
     Route: 061
     Dates: start: 20160609, end: 20160707
  2. TOBRAMYCIN. [Concomitant]
     Active Substance: TOBRAMYCIN
  3. TOBI NEB [Concomitant]
  4. PULMAZYME [Concomitant]
  5. FLONASE [Concomitant]
     Active Substance: FLUTICASONE PROPIONATE
  6. PROACTIV SOLUTION RENEWING CLEANSER [Suspect]
     Active Substance: BENZOYL PEROXIDE
     Indication: ACNE
     Route: 061
     Dates: start: 20160609, end: 20160707
  7. FLOVENT [Concomitant]
     Active Substance: FLUTICASONE PROPIONATE
  8. HYPERTONIC SALINE [Concomitant]
     Active Substance: SODIUM CHLORIDE
  9. PANCREATIC DIGESTIVE ENZYMES [Concomitant]
  10. ZITHROMAX [Concomitant]
     Active Substance: AZITHROMYCIN DIHYDRATE
  11. VITAMIN (CF SOURCE) [Concomitant]

REACTIONS (2)
  - Urticaria [Recovering/Resolving]
  - Dyspnoea [Recovering/Resolving]

NARRATIVE: CASE EVENT DATE: 20160707
